FAERS Safety Report 25253775 (Version 2)
Quarter: 2025Q2

REPORT INFORMATION
  Report Type: Report from Study
  Country: GR (occurrence: GR)
  Receive Date: 20250430
  Receipt Date: 20250508
  Transmission Date: 20250717
  Serious: No
  Sender: SANDOZ
  Company Number: GR-SANDOZ-SDZ2025GR026959

PATIENT
  Age: 15 Year
  Sex: Male

DRUGS (2)
  1. OMNITROPE [Suspect]
     Active Substance: SOMATROPIN
     Dosage: 8 DF, QW
     Route: 058
  2. OMNITROPE [Suspect]
     Active Substance: SOMATROPIN
     Indication: Growth hormone deficiency
     Dosage: 9 DF, QW
     Route: 058

REACTIONS (5)
  - Blood growth hormone increased [Not Recovered/Not Resolved]
  - Incorrect dose administered by device [Unknown]
  - Wrong technique in device usage process [Unknown]
  - Device defective [Unknown]
  - Poor quality device used [Unknown]
